FAERS Safety Report 6034438-6 (Version None)
Quarter: 2009Q1

REPORT INFORMATION
  Report Type: 
  Country: None (occurrence: None)
  Receive Date: 20090112
  Receipt Date: 20090109
  Transmission Date: 20090719
  Serious: Yes (Other)
  Sender: FDA-Public Use
  Company Number: B0553077A

PATIENT
  Age: 2 Year

DRUGS (1)
  1. CLAVAMOX [Suspect]
     Indication: OTITIS MEDIA
     Route: 048

REACTIONS (1)
  - CONVULSION [None]
